FAERS Safety Report 10920159 (Version 2)
Quarter: 2015Q1

REPORT INFORMATION
  Report Type: Report from Study
  Country: DE (occurrence: DE)
  Receive Date: 20150317
  Receipt Date: 20150317
  Transmission Date: 20150721
  Serious: Yes (Hospitalization)
  Sender: FDA-Public Use
  Company Number: PHHO2015DE003458

PATIENT
  Age: 54 Year
  Sex: Female
  Weight: 77 kg

DRUGS (11)
  1. LORATADINE. [Concomitant]
     Active Substance: LORATADINE
     Indication: DERMATITIS ALLERGIC
     Dosage: 10 MG, QD
     Route: 048
     Dates: start: 20150224, end: 20150228
  2. OEKOLP [Concomitant]
     Indication: ATROPHY
     Dosage: 1 SUPP/ORIGINAL QD/0.5 CM TOPICAL
     Dates: start: 20141020
  3. AIN457 [Suspect]
     Active Substance: SECUKINUMAB
     Indication: PSORIATIC ARTHROPATHY
     Dosage: 150 MG,
     Route: 058
     Dates: start: 20141106, end: 20150129
  4. OEKOLP [Concomitant]
     Dosage: UNK
  5. RANITIDIN [Concomitant]
     Active Substance: RANITIDINE HYDROCHLORIDE
     Dosage: 150 MG, UNK
  6. AVALOX [Concomitant]
     Active Substance: MOXIFLOXACIN HYDROCHLORIDE
     Dosage: 400 MG, UNK
  7. FOLIC ACID. [Concomitant]
     Active Substance: FOLIC ACID
     Indication: ALOPECIA
     Dosage: 5 MG, QW
     Route: 048
     Dates: start: 20141123, end: 20150301
  8. DEKRISTOL [Concomitant]
     Active Substance: CHOLECALCIFEROL
     Indication: OSTEOPENIA
     Dosage: 20.000/FLORAL Q2W
     Dates: start: 20141123
  9. DECORTIN H [Concomitant]
     Active Substance: PREDNISOLONE
     Dosage: 30 MG, UNK
  10. L-THYROXIN [Concomitant]
     Active Substance: LEVOTHYROXINE SODIUM
     Indication: HYPOTHYROIDISM
     Dosage: 100 MG, QD
     Dates: start: 2010
  11. CIMZIA [Concomitant]
     Active Substance: CERTOLIZUMAB PEGOL
     Dosage: 400 MG, UNK

REACTIONS (3)
  - Syncope [Recovered/Resolved]
  - Dyspnoea [Recovered/Resolved]
  - Circulatory collapse [Recovered/Resolved]

NARRATIVE: CASE EVENT DATE: 20150226
